FAERS Safety Report 18368068 (Version 1)
Quarter: 2020Q4

REPORT INFORMATION
  Report Type: Spontaneous
  Country: JM (occurrence: GB)
  Receive Date: 20201009
  Receipt Date: 20201009
  Transmission Date: 20210114
  Serious: Yes (Death)
  Sender: FDA-Public Use
  Company Number: JM-009507513-2010GBR002633

PATIENT
  Age: 49 Year
  Sex: Male

DRUGS (10)
  1. MIRTAZAPINE. [Suspect]
     Active Substance: MIRTAZAPINE
     Route: 048
  2. CODEINE [Suspect]
     Active Substance: CODEINE
  3. NORDAZEPAM [Suspect]
     Active Substance: NORDAZEPAM
  4. METHADONE HYDROCHLORIDE. [Suspect]
     Active Substance: METHADONE HYDROCHLORIDE
  5. ETIZOLAM [Suspect]
     Active Substance: ETIZOLAM
  6. OXAZEPAM. [Suspect]
     Active Substance: OXAZEPAM
  7. DIAZEPAM. [Suspect]
     Active Substance: DIAZEPAM
  8. TEMAZEPAM. [Suspect]
     Active Substance: TEMAZEPAM
  9. MORPHINE [Suspect]
     Active Substance: MORPHINE
  10. PREGABALIN. [Suspect]
     Active Substance: PREGABALIN

REACTIONS (1)
  - Toxicity to various agents [Fatal]
